FAERS Safety Report 10717970 (Version 1)
Quarter: 2015Q1

REPORT INFORMATION
  Report Type: Spontaneous
  Country: AR (occurrence: AR)
  Receive Date: 20150116
  Receipt Date: 20150116
  Transmission Date: 20150721
  Serious: Yes (Death, Congenital Anomaly, Other)
  Sender: FDA-Public Use
  Company Number: AR-ROXANE LABORATORIES, INC.-2015-RO-00047RO

PATIENT
  Age: 1 Day
  Sex: Male

DRUGS (7)
  1. URSODEOXYCHOLIC ACID [Suspect]
     Active Substance: URSODIOL
     Indication: FOETAL EXPOSURE DURING PREGNANCY
     Route: 064
  2. CHOLESTYRAMINE. [Suspect]
     Active Substance: CHOLESTYRAMINE
     Indication: FOETAL EXPOSURE DURING PREGNANCY
     Route: 064
  3. DIPHENHYDRAMINE [Suspect]
     Active Substance: DIPHENHYDRAMINE
     Indication: FOETAL EXPOSURE DURING PREGNANCY
     Route: 064
  4. CYCLOSPORINE. [Suspect]
     Active Substance: CYCLOSPORINE
     Indication: FOETAL EXPOSURE DURING PREGNANCY
     Route: 064
  5. MYCOPHENOLATE MOFETIL. [Suspect]
     Active Substance: MYCOPHENOLATE MOFETIL
     Indication: FOETAL EXPOSURE DURING PREGNANCY
     Route: 064
  6. MEPREDNISONE [Suspect]
     Active Substance: MEPREDNISONE
     Indication: FOETAL EXPOSURE DURING PREGNANCY
     Route: 064
  7. AZATHIOPRINE. [Suspect]
     Active Substance: AZATHIOPRINE
     Indication: FOETAL EXPOSURE DURING PREGNANCY
     Route: 064

REACTIONS (7)
  - Premature baby [Unknown]
  - Oesophageal atresia [Unknown]
  - Low birth weight baby [Unknown]
  - Death [Fatal]
  - Hemivertebra [Unknown]
  - Maternal drugs affecting foetus [None]
  - Death neonatal [None]
